FAERS Safety Report 15711171 (Version 1)
Quarter: 2018Q4

REPORT INFORMATION
  Report Type: Spontaneous
  Country: JP (occurrence: JP)
  Receive Date: 20181211
  Receipt Date: 20181211
  Transmission Date: 20190205
  Serious: Yes (Other)
  Sender: FDA-Public Use
  Company Number: JP-SA-2018SA325832

PATIENT
  Age: 69 Year
  Sex: Female

DRUGS (1)
  1. KEVZARA [Suspect]
     Active Substance: SARILUMAB
     Indication: RHEUMATOID ARTHRITIS
     Dosage: 200 MG, QD
     Route: 058
     Dates: start: 20180912, end: 20181121

REACTIONS (2)
  - Myocardial infarction [Not Recovered/Not Resolved]
  - White blood cell count decreased [Not Recovered/Not Resolved]
